FAERS Safety Report 8152361-8 (Version None)
Quarter: 2012Q1

REPORT INFORMATION
  Report Type: 
  Country: None (occurrence: None)
  Receive Date: 20120214
  Receipt Date: 20120206
  Transmission Date: 20120608
  Serious: Yes (Hospitalization)
  Sender: FDA-Public Use
  Company Number: 2012SP007319

PATIENT
  Age: 61 Year
  Sex: Male
  Weight: 62 kg

DRUGS (8)
  1. BOCEPREVIR (SCH-503034) [Suspect]
     Indication: HEPATITIS C
     Dosage: 800 MG;TID
     Dates: start: 20120111
  2. VIRAFERONPEG [Suspect]
     Indication: HEPATITIS C
     Dosage: 80 MCG;QW
     Dates: start: 20111215
  3. TRUVADA [Concomitant]
  4. ACETAMINOPHEN [Concomitant]
  5. FOSAMAX [Concomitant]
  6. NORVIR [Concomitant]
  7. REYATAZ [Concomitant]
  8. REBETOL [Suspect]
     Indication: HEPATITIS C
     Dosage: 400 MG;BID
     Dates: start: 20111215

REACTIONS (1)
  - HOSPITALISATION [None]
